FAERS Safety Report 13452290 (Version 1)
Quarter: 2017Q2

REPORT INFORMATION
  Report Type: Report from Study
  Country: IL (occurrence: IL)
  Receive Date: 20170418
  Receipt Date: 20170418
  Transmission Date: 20170830
  Serious: Yes (Hospitalization)
  Sender: FDA-Public Use
  Company Number: IL-ROCHE-705485

PATIENT
  Age: 70 Year
  Sex: Female
  Weight: 152 kg

DRUGS (12)
  1. OCRELIZUMAB [Suspect]
     Active Substance: OCRELIZUMAB
     Indication: RHEUMATOID ARTHRITIS
     Dosage: LAST DOSE RECIVED ON 05 AUG 2009. DOSE FORM: INFUSION
     Route: 042
  2. REPAGLINIDE. [Concomitant]
     Active Substance: REPAGLINIDE
     Route: 065
  3. FOLIC ACID. [Concomitant]
     Active Substance: FOLIC ACID
     Dosage: FREQUENCY: QS
     Route: 065
  4. SOLIFENACIN [Concomitant]
     Active Substance: SOLIFENACIN
     Route: 065
  5. PREDNISONE. [Concomitant]
     Active Substance: PREDNISONE
     Route: 065
  6. PLACEBO [Suspect]
     Active Substance: UNSPECIFIED INGREDIENT
     Indication: RHEUMATOID ARTHRITIS
     Dosage: FREQUENCY REPORTED AS DAY 1 + 15. DOSE FORM : INFUSION.
     Route: 042
  7. LOSARTAN. [Concomitant]
     Active Substance: LOSARTAN
     Route: 065
  8. OMEPRAZOLE. [Concomitant]
     Active Substance: OMEPRAZOLE
     Route: 065
     Dates: start: 20060630, end: 20100526
  9. PREDNISONE. [Concomitant]
     Active Substance: PREDNISONE
     Route: 065
     Dates: start: 20060630, end: 20100415
  10. TROSPIUM CHLORIDE. [Concomitant]
     Active Substance: TROSPIUM CHLORIDE
     Route: 065
     Dates: start: 20080215, end: 20090415
  11. METHOTREXATE. [Suspect]
     Active Substance: METHOTREXATE
     Indication: RHEUMATOID ARTHRITIS
     Route: 065
     Dates: start: 20080528
  12. ENALAPRIL MALEATE. [Concomitant]
     Active Substance: ENALAPRIL MALEATE
     Route: 065
     Dates: start: 20081008, end: 20090415

REACTIONS (1)
  - Diarrhoea [Recovered/Resolved]

NARRATIVE: CASE EVENT DATE: 20100523
